FAERS Safety Report 18246105 (Version 3)
Quarter: 2025Q3

REPORT INFORMATION
  Report Type: Spontaneous
  Country: US (occurrence: US)
  Receive Date: 20200909
  Receipt Date: 20250909
  Transmission Date: 20251021
  Serious: Yes (Life-Threatening, Hospitalization, Other)
  Sender: STRIDES
  Company Number: None

PATIENT
  Age: 5 Decade
  Sex: Female

DRUGS (6)
  1. HYDROCORTISONE [Suspect]
     Active Substance: HYDROCORTISONE
     Indication: Juvenile idiopathic arthritis
     Route: 065
  2. HYDROCORTISONE [Suspect]
     Active Substance: HYDROCORTISONE
     Indication: Adrenal insufficiency
     Route: 065
  3. HYDROXYCHLOROQUINE [Suspect]
     Active Substance: HYDROXYCHLOROQUINE
     Indication: Juvenile idiopathic arthritis
     Route: 065
  4. HYDROXYCHLOROQUINE [Suspect]
     Active Substance: HYDROXYCHLOROQUINE
     Route: 065
  5. HYDROXYCHLOROQUINE [Suspect]
     Active Substance: HYDROXYCHLOROQUINE
     Route: 065
  6. ANAKINRA [Concomitant]
     Active Substance: ANAKINRA
     Indication: Juvenile idiopathic arthritis
     Route: 058

REACTIONS (17)
  - Encephalomalacia [Recovered/Resolved]
  - Respiratory failure [Recovered/Resolved]
  - Encephalopathy [Recovered/Resolved]
  - Respiratory acidosis [Recovered/Resolved]
  - Hypercapnia [Recovered/Resolved]
  - Myopathy [Recovered/Resolved]
  - Pneumothorax [Recovered/Resolved]
  - Diaphragm muscle weakness [Recovered/Resolved]
  - Muscle injury [Recovered/Resolved]
  - Respiratory failure [Recovered/Resolved]
  - Fall [Recovered/Resolved]
  - Embolic stroke [Recovered/Resolved]
  - Cervical vertebral fracture [Recovered/Resolved]
  - Subarachnoid haemorrhage [Recovered/Resolved]
  - Tibia fracture [Recovered/Resolved]
  - Toxicity to various agents [Recovered/Resolved]
  - Pneumonia [Unknown]
